FAERS Safety Report 6714942-5 (Version None)
Quarter: 2010Q2

REPORT INFORMATION
  Report Type: 
  Country: None (occurrence: None)
  Receive Date: 20100507
  Receipt Date: 20100426
  Transmission Date: 20101027
  Serious: Yes (Death)
  Sender: FDA-Public Use
  Company Number: JP-JNJFOC-20090606317

PATIENT
  Sex: Female
  Weight: 49.5 kg

DRUGS (14)
  1. DOXORUBICIN HCL [Suspect]
     Indication: OVARIAN CANCER RECURRENT
     Dosage: CYCLE 1 76 MG ONCE A DAY
     Route: 042
  2. DEXAMETHASONE [Concomitant]
     Indication: PROPHYLAXIS
     Route: 042
  3. RANITIDINE [Concomitant]
     Indication: PROPHYLAXIS
     Route: 042
  4. CHLORPHENIRAMINE MALEATE [Concomitant]
     Indication: PROPHYLAXIS
     Route: 042
  5. FENTANYL [Concomitant]
     Indication: CANCER PAIN
     Route: 062
     Dates: start: 20090604, end: 20090614
  6. DICLOFENAC SODIUM [Concomitant]
     Indication: CANCER PAIN
     Route: 048
     Dates: start: 20090601, end: 20090614
  7. FAMOTIDINE [Concomitant]
     Indication: PROPHYLAXIS
     Route: 048
     Dates: start: 20090601, end: 20090614
  8. PRIMPERAN TAB [Concomitant]
     Route: 048
  9. NAUZELIN [Concomitant]
     Route: 048
  10. PROCHLORPERAZINE [Concomitant]
  11. MAGLAX [Concomitant]
     Indication: PROPHYLAXIS
     Route: 048
  12. PURSENNID [Concomitant]
     Indication: PROPHYLAXIS
     Route: 048
  13. VOLTAREN [Concomitant]
     Indication: CANCER PAIN
     Route: 048
  14. LENDORMIN [Concomitant]
     Route: 048

REACTIONS (2)
  - RESPIRATORY FAILURE [None]
  - SYNCOPE [None]
